FAERS Safety Report 22052996 (Version 1)
Quarter: 2023Q1

REPORT INFORMATION
  Report Type: Spontaneous
  Country: FR (occurrence: FR)
  Receive Date: 20230302
  Receipt Date: 20230302
  Transmission Date: 20230418
  Serious: Yes (Hospitalization)
  Sender: FDA-Public Use
  Company Number: None

PATIENT
  Age: 84 Year
  Sex: Male
  Weight: 70 kg

DRUGS (3)
  1. CISPLATIN [Suspect]
     Active Substance: CISPLATIN
     Indication: Cholangiocarcinoma
     Dosage: STRENGTH: 1 MG/ML ?25MG D1, D8 (25MG / M2 REDUCED TO 54.5% OF THE THEORETICAL DOSE)
     Dates: start: 20221222, end: 20221222
  2. GEMCITABINE [Suspect]
     Active Substance: GEMCITABINE
     Indication: Cholangiocarcinoma
     Dosage: STRENGTH: 1000 MG?1600MG D1, D8 (1000MG / M2 REDUCED TO 87% OF THE THEORETICAL DOSE)
     Dates: start: 20221222, end: 20221222
  3. DURVALUMAB [Suspect]
     Active Substance: DURVALUMAB
     Indication: Cholangiocarcinoma
     Dosage: STRENGTH: 50 MG/ML,SOLUTION?1500 MG EVERY 21D
     Route: 042
     Dates: start: 20221222, end: 20221222

REACTIONS (3)
  - Urinary tract infection [Unknown]
  - Bicytopenia [Unknown]
  - General physical health deterioration [Not Recovered/Not Resolved]

NARRATIVE: CASE EVENT DATE: 20221230
